FAERS Safety Report 7321518-8 (Version None)
Quarter: 2011Q1

REPORT INFORMATION
  Report Type: 
  Country: None (occurrence: None)
  Receive Date: 20110228
  Receipt Date: 20110217
  Transmission Date: 20110831
  Serious: Yes (Other)
  Sender: FDA-Public Use
  Company Number: US-ASTRAZENECA-2010SE55722

PATIENT
  Age: 67 Year
  Sex: Female

DRUGS (3)
  1. IMODIUM [Concomitant]
  2. NEXIUM [Suspect]
     Dosage: DAILY
     Route: 048
  3. SEROQUEL [Suspect]
     Dosage: 1 TABLET BID AND 4 TABLETS HS
     Route: 048

REACTIONS (11)
  - DIVERTICULITIS [None]
  - VIITH NERVE INJURY [None]
  - DYSURIA [None]
  - LOWER LIMB FRACTURE [None]
  - PYREXIA [None]
  - WEIGHT LOSS POOR [None]
  - WRIST FRACTURE [None]
  - VOMITING [None]
  - WEIGHT INCREASED [None]
  - STRESS [None]
  - DIARRHOEA [None]
